FAERS Safety Report 8356253-0 (Version None)
Quarter: 2012Q2

REPORT INFORMATION
  Report Type: 
  Country: None (occurrence: None)
  Receive Date: 20120514
  Receipt Date: 20120503
  Transmission Date: 20120825
  Serious: Yes (Hospitalization)
  Sender: FDA-Public Use
  Company Number: US-US-EMD SERONO, INC.-7019612

PATIENT
  Sex: Female
  Weight: 3 kg

DRUGS (2)
  1. MIRAPEX [Concomitant]
     Route: 064
  2. REBIF [Suspect]
     Route: 064
     Dates: start: 20090811, end: 20100101

REACTIONS (2)
  - PREMATURE BABY [None]
  - FOETAL EXPOSURE DURING PREGNANCY [None]
